FAERS Safety Report 11617250 (Version 6)
Quarter: 2019Q2

REPORT INFORMATION
  Report Type: Report from Study
  Country: US (occurrence: US)
  Receive Date: 20151009
  Receipt Date: 20190617
  Transmission Date: 20190711
  Serious: Yes (Death, Hospitalization)
  Sender: FDA-Public Use
  Company Number: US-ACTELION-A-NJ2015-125378

PATIENT
  Age: 67 Year
  Sex: Female
  Weight: 45.35 kg

DRUGS (4)
  1. VENTAVIS [Suspect]
     Active Substance: ILOPROST
     Indication: PULMONARY HYPERTENSION
     Dosage: 5 MCG, 4-6X DAILY
     Route: 055
     Dates: start: 20110913
  2. RIOCIGUAT. [Concomitant]
     Active Substance: RIOCIGUAT
  3. LETAIRIS [Concomitant]
     Active Substance: AMBRISENTAN
  4. VENTAVIS [Suspect]
     Active Substance: ILOPROST
     Dosage: 5 MCG, 6-9X DAILY
     Route: 055

REACTIONS (7)
  - Death [Fatal]
  - Malaise [Unknown]
  - Spinal fracture [Unknown]
  - Asthenia [Unknown]
  - Fall [Unknown]
  - Fatigue [Unknown]
  - Treatment noncompliance [Unknown]

NARRATIVE: CASE EVENT DATE: 20190608
